FAERS Safety Report 8902038 (Version 5)
Quarter: 2013Q4

REPORT INFORMATION
  Report Type: Report from Study
  Country: JP (occurrence: JP)
  Receive Date: 20121112
  Receipt Date: 20131101
  Transmission Date: 20140711
  Serious: Yes (Other)
  Sender: FDA-Public Use
  Company Number: JP-VERTEX PHARMACEUTICAL INC.-2012-024317

PATIENT
  Age: 70 Year
  Sex: Male

DRUGS (13)
  1. VX-950 (TELAPREVIR) [Suspect]
     Indication: CHRONIC HEPATITIS C
     Dosage: 1500 MG, QD
     Route: 048
     Dates: start: 20120910, end: 20121203
  2. RIBAVIRIN [Suspect]
     Indication: CHRONIC HEPATITIS C
     Dosage: 800 MG, QD
     Route: 048
     Dates: start: 20120910, end: 20120927
  3. RIBAVIRIN [Suspect]
     Dosage: 400 MG, QD
     Route: 048
     Dates: start: 20120928, end: 20121105
  4. RIBAVIRIN [Suspect]
     Dosage: 750MG/DAY AND 500MG/DAY QOD
     Route: 048
     Dates: start: 20121106, end: 20121210
  5. RIBAVIRIN [Suspect]
     Dosage: 600 MG, QD
     Route: 048
     Dates: start: 20121211, end: 20130305
  6. PEGINTERFERON ALFA-2B [Suspect]
     Indication: CHRONIC HEPATITIS C
     Dosage: 1.633 ?G/KG, QW
     Route: 058
     Dates: start: 20120910, end: 20120925
  7. PEGINTERFERON ALFA-2B [Suspect]
     Dosage: 90 ?G, QW
     Route: 058
     Dates: start: 20121002, end: 20130306
  8. MUCOSTA [Concomitant]
     Dosage: 100 MG, QD
     Route: 048
     Dates: start: 20120910, end: 20120910
  9. MUCOSTA [Concomitant]
     Dosage: 100 MG, QD
     Route: 048
     Dates: start: 20121023, end: 20121210
  10. SOLDEM 3AG [Concomitant]
     Dosage: 500 ML, QD
     Route: 042
     Dates: start: 20120913, end: 20120917
  11. SOLACET D [Concomitant]
     Dosage: 500 ML, QD
     Route: 042
     Dates: start: 20120913, end: 20120918
  12. HOKUNALIN [Concomitant]
     Dosage: 2 MG, QD
     Route: 062
  13. MEIACT [Concomitant]
     Dosage: 300 MG, QD
     Route: 048
     Dates: start: 20121204, end: 20121208

REACTIONS (3)
  - White blood cell count decreased [Recovered/Resolved]
  - Neutrophil count decreased [Recovered/Resolved]
  - Neutrophil count decreased [Recovered/Resolved]
